FAERS Safety Report 6711539-8 (Version None)
Quarter: 2010Q2

REPORT INFORMATION
  Report Type: 
  Country: None (occurrence: None)
  Receive Date: 20100505
  Receipt Date: 20100422
  Transmission Date: 20101027
  Serious: Yes (Other)
  Sender: FDA-Public Use
  Company Number: PHHY2010JP26740

PATIENT
  Sex: Male
  Weight: 94 kg

DRUGS (7)
  1. DIOVAN [Suspect]
     Dosage: 40 MG, BID
     Route: 048
     Dates: start: 20071221, end: 20080215
  2. DIOVAN [Suspect]
     Dosage: 80 MG, QD
     Route: 048
     Dates: start: 20080215, end: 20080605
  3. DIOVAN [Suspect]
     Dosage: 80 MG, BID
     Dates: start: 20080606
  4. FLUITRAN [Concomitant]
     Indication: HYPERTENSION
     Dosage: 1 MG
     Route: 048
     Dates: start: 20090314
  5. ALLORINE [Concomitant]
     Dosage: 200 MG
     Route: 048
     Dates: start: 20090508
  6. LOXONIN [Concomitant]
     Dosage: UNK
     Route: 062
     Dates: start: 20090703, end: 20091023
  7. CLARITIN [Concomitant]
     Dosage: 10 MG
     Route: 048
     Dates: start: 20090509, end: 20090515

REACTIONS (9)
  - ARTHRALGIA [None]
  - BLOOD PRESSURE INCREASED [None]
  - BLOOD TRIGLYCERIDES INCREASED [None]
  - CHEST PAIN [None]
  - HAEMATEMESIS [None]
  - HEPATITIS C ANTIBODY POSITIVE [None]
  - HYPERURICAEMIA [None]
  - LOSS OF CONSCIOUSNESS [None]
  - RHINITIS ALLERGIC [None]
